FAERS Safety Report 12393103 (Version 2)
Quarter: 2016Q3

REPORT INFORMATION
  Report Type: Spontaneous
  Country: US (occurrence: US)
  Receive Date: 20160523
  Receipt Date: 20160718
  Transmission Date: 20161109
  Serious: No
  Sender: FDA-Public Use
  Company Number: US-PFIZER INC-2016261178

PATIENT
  Age: 44 Year
  Sex: Female

DRUGS (1)
  1. CELEBREX [Suspect]
     Active Substance: CELECOXIB
     Indication: ARTHRALGIA
     Dosage: 200 MG, UNK
     Dates: start: 20160407

REACTIONS (1)
  - Drug ineffective for unapproved indication [Unknown]
